FAERS Safety Report 19154108 (Version 3)
Quarter: 2024Q1

REPORT INFORMATION
  Report Type: Other
  Country: NL (occurrence: NL)
  Receive Date: 20210419
  Receipt Date: 20240314
  Transmission Date: 20240409
  Serious: Yes (Hospitalization, Other)
  Sender: FDA-Public Use
  Company Number: NL-NOVA LABORATORIES LIMITED-2109473

PATIENT
  Age: 60 Year
  Sex: Female

DRUGS (11)
  1. PURIXAN [Suspect]
     Active Substance: MERCAPTOPURINE
     Dates: start: 2018, end: 2018
  2. MYCOPHENOLATE MOFETIL [Suspect]
     Active Substance: MYCOPHENOLATE MOFETIL
     Dates: start: 2005, end: 2017
  3. INFLIXIMAB [Suspect]
     Active Substance: INFLIXIMAB
     Dates: start: 201901, end: 2019
  4. TACROLIMUS [Suspect]
     Active Substance: TACROLIMUS
     Dates: start: 2017
  5. AZATHIOPRINE [Suspect]
     Active Substance: AZATHIOPRINE
     Dates: start: 2018, end: 2018
  6. TACROLIMUS [Suspect]
     Active Substance: TACROLIMUS
     Dates: start: 2018
  7. TACROLIMUS [Suspect]
     Active Substance: TACROLIMUS
  8. PREDNISOLONE SODIUM PHOSPHATE [Suspect]
     Active Substance: PREDNISOLONE SODIUM PHOSPHATE
     Dates: start: 2017
  9. PREDNISOLONE SODIUM PHOSPHATE [Suspect]
     Active Substance: PREDNISOLONE SODIUM PHOSPHATE
     Dates: start: 2005, end: 2017
  10. INFLECTRA [Suspect]
     Active Substance: INFLIXIMAB-DYYB
     Dates: start: 201811
  11. INFLECTRA [Suspect]
     Active Substance: INFLIXIMAB-DYYB
     Dates: start: 201809

REACTIONS (3)
  - Histoplasmosis disseminated [Unknown]
  - Condition aggravated [Recovered/Resolved]
  - Off label use [Unknown]
